FAERS Safety Report 17933189 (Version 1)
Quarter: 2020Q2

REPORT INFORMATION
  Report Type: Spontaneous
  Country: RU (occurrence: RU)
  Receive Date: 20200623
  Receipt Date: 20200623
  Transmission Date: 20200714
  Serious: Yes (Other)
  Sender: FDA-Public Use
  Company Number: RU-PFIZER INC-2020239111

PATIENT
  Age: 37 Year
  Sex: Male

DRUGS (5)
  1. NEBIVOLOL. [Concomitant]
     Active Substance: NEBIVOLOL
     Indication: HYPERTENSION
     Dosage: UNK, 1X/DAY (IN THE MORNING)
  2. NORVASC [Suspect]
     Active Substance: AMLODIPINE BESYLATE
     Indication: HYPERTENSION
     Dosage: 10 MG, 1X/DAY (IN THE EVENING)
  3. MICARDIS PLUS [Concomitant]
     Active Substance: HYDROCHLOROTHIAZIDE\TELMISARTAN
     Indication: HYPERTENSION
     Dosage: UNK, 1X/DAY (IN THE MORNING)
  4. CARDIOMAGNYL [Concomitant]
     Active Substance: ASPIRIN\MAGNESIUM HYDROXIDE
     Indication: HYPERTENSION
     Dosage: UNK, 1X/DAY (IN THE EVENING)
  5. PRADAXA [Concomitant]
     Active Substance: DABIGATRAN ETEXILATE MESYLATE
     Indication: HYPERTENSION
     Dosage: UNK 1X/DAY (IN THE MORNING)

REACTIONS (4)
  - Erectile dysfunction [Unknown]
  - Head discomfort [Unknown]
  - Insomnia [Unknown]
  - Peripheral coldness [Unknown]
